FAERS Safety Report 9845212 (Version 1)
Quarter: 2014Q1

REPORT INFORMATION
  Report Type: Spontaneous
  Country: US (occurrence: US)
  Receive Date: 20140127
  Receipt Date: 20140127
  Transmission Date: 20141002
  Serious: Yes (Hospitalization)
  Sender: FDA-Public Use
  Company Number: US-MYLANLABS-2014S1001239

PATIENT
  Age: 31 Year
  Sex: Male

DRUGS (4)
  1. BUPROPION [Suspect]
     Indication: INTENTIONAL OVERDOSE
     Route: 065
  2. PARACETAMOL [Concomitant]
     Route: 065
  3. DEXTROMETHORPHAN [Concomitant]
     Route: 065
  4. CHLORPHENAMINE [Concomitant]
     Route: 065

REACTIONS (10)
  - Intentional overdose [Recovered/Resolved]
  - Grand mal convulsion [Recovered/Resolved]
  - Shock [Recovered/Resolved]
  - Electrocardiogram QRS complex prolonged [Recovered/Resolved]
  - Electrocardiogram QT prolonged [Recovered/Resolved]
  - Ventricular extrasystoles [Recovered/Resolved]
  - Ventricular extrasystoles [Recovered/Resolved]
  - Atrial fibrillation [Recovered/Resolved]
  - Pyrexia [Unknown]
  - Sinus tachycardia [Recovered/Resolved]
